FAERS Safety Report 15116468 (Version 1)
Quarter: 2018Q3

REPORT INFORMATION
  Report Type: Spontaneous
  Country: US (occurrence: US)
  Receive Date: 20180706
  Receipt Date: 20180706
  Transmission Date: 20181010
  Serious: Yes (Death, Other)
  Sender: FDA-Public Use
  Company Number: US-PFIZER INC-2018268629

PATIENT
  Age: 12 Year
  Sex: Female

DRUGS (3)
  1. XALKORI [Suspect]
     Active Substance: CRIZOTINIB
     Indication: BRAIN STEM GLIOMA
     Dosage: UNK
  2. XALKORI [Suspect]
     Active Substance: CRIZOTINIB
     Indication: NON-SMALL CELL LUNG CANCER
  3. DASATINIB. [Suspect]
     Active Substance: DASATINIB
     Indication: BRAIN STEM GLIOMA
     Dosage: UNK

REACTIONS (3)
  - Malaise [Unknown]
  - Nausea [Unknown]
  - Death [Fatal]

NARRATIVE: CASE EVENT DATE: 20180402
